FAERS Safety Report 8851006 (Version 1)
Quarter: 2012Q4

REPORT INFORMATION
  Report Type: 
  Country: US (occurrence: US)
  Receive Date: 20121019
  Receipt Date: 20121019
  Transmission Date: 20130627
  Serious: No
  Sender: FDA-Public Use
  Company Number: US-PFIZER INC-2012257622

PATIENT
  Sex: Female

DRUGS (4)
  1. LYRICA [Suspect]
     Indication: FIBROMYALGIA
     Dosage: 150 mg, 2x/day
     Dates: start: 201201
  2. LYRICA [Suspect]
     Dosage: 150 mg, 3x/day
     Dates: start: 201203
  3. LYRICA [Suspect]
     Dosage: 300 mg, 2x/day
     Dates: start: 201203, end: 201208
  4. TOPAMAX [Concomitant]
     Indication: MIGRAINE
     Dosage: UNK

REACTIONS (2)
  - Drug effect incomplete [Unknown]
  - Pain in extremity [Recovering/Resolving]
